FAERS Safety Report 9871301 (Version 1)
Quarter: 2014Q1

REPORT INFORMATION
  Report Type: Spontaneous
  Country: FR (occurrence: FR)
  Receive Date: 20140205
  Receipt Date: 20140205
  Transmission Date: 20141002
  Serious: Yes (Death, Hospitalization, Disabling)
  Sender: FDA-Public Use
  Company Number: FR-ACTAVIS-2014-01406

PATIENT
  Age: 75 Year
  Sex: Female

DRUGS (5)
  1. GEMCITABINE ACTAVIS [Suspect]
     Indication: SKIN ANGIOSARCOMA
     Dosage: 1,000 MG/M2, DAILY
     Route: 042
     Dates: start: 20110623, end: 201112
  2. GEMCITABINE ACTAVIS [Suspect]
     Dosage: 500-700 MG/M2, DAILY
     Route: 042
     Dates: start: 20120726, end: 20130201
  3. TAXOL [Concomitant]
  4. NAVELBINE [Concomitant]
  5. TIANEPTINE SODIUM [Concomitant]

REACTIONS (5)
  - Cardiac failure congestive [Fatal]
  - Dyspnoea [None]
  - Generalised oedema [None]
  - Cardiac failure [None]
  - Brain natriuretic peptide increased [None]
